FAERS Safety Report 18330210 (Version 1)
Quarter: 2020Q3

REPORT INFORMATION
  Report Type: Spontaneous
  Country: US (occurrence: US)
  Receive Date: 20200930
  Receipt Date: 20200930
  Transmission Date: 20201103
  Serious: Yes (Other)
  Sender: FDA-Public Use
  Company Number: None

PATIENT
  Age: 66 Year
  Sex: Female

DRUGS (7)
  1. ZOMETA 4MG/ML INJECTION [Concomitant]
  2. MELATONIN 10 MG [Concomitant]
     Active Substance: MELATONIN
  3. TYLENOL [Concomitant]
     Active Substance: ACETAMINOPHEN
  4. POMALYST 1 MG [Concomitant]
     Dates: start: 20200807
  5. ACYCLOVIR 400 MG [Concomitant]
     Active Substance: ACYCLOVIR
  6. MULTIVITAMIN [Concomitant]
     Active Substance: VITAMINS
  7. NINLARO [Suspect]
     Active Substance: IXAZOMIB CITRATE
     Indication: PLASMA CELL MYELOMA
     Dosage: ?          OTHER FREQUENCY:EVERY 7 DAYS;?
     Route: 048
     Dates: start: 20190706

REACTIONS (5)
  - Contusion [None]
  - Skin swelling [None]
  - Pain of skin [None]
  - Thrombosis [None]
  - Therapy interrupted [None]

NARRATIVE: CASE EVENT DATE: 20200925
